FAERS Safety Report 10184678 (Version 1)
Quarter: 2014Q2

REPORT INFORMATION
  Report Type: Spontaneous
  Country: US (occurrence: None)
  Receive Date: 20140519
  Receipt Date: 20140519
  Transmission Date: 20141212
  Serious: No
  Sender: FDA-Public Use
  Company Number: 2014-00051

PATIENT
  Age: 61 Year
  Sex: Male

DRUGS (2)
  1. ZICAM COLD REMEDY GEL SWABS [Suspect]
     Indication: NASOPHARYNGITIS
     Dosage: 1 SWAB NASALLY
     Dates: start: 20140327
  2. ZICAM COLD REMEDY GEL SWABS [Suspect]
     Indication: INFLUENZA
     Dosage: 1 SWAB NASALLY
     Dates: start: 20140327

REACTIONS (2)
  - Anosmia [None]
  - Ageusia [None]
